FAERS Safety Report 5405188-1 (Version None)
Quarter: 2007Q3

REPORT INFORMATION
  Report Type: 
  Country: None (occurrence: None)
  Receive Date: 20070803
  Receipt Date: 20070730
  Transmission Date: 20080115
  Serious: Yes (Hospitalization, Other)
  Sender: FDA-Public Use
  Company Number: US-ELI_LILLY_AND_COMPANY-US200707007074

PATIENT
  Age: 77 Year
  Sex: Male

DRUGS (2)
  1. HUMALOG MIX 50/50 [Suspect]
  2. HUMULIN 70/30 [Suspect]

REACTIONS (14)
  - BLOOD GLUCOSE DECREASED [None]
  - CELLULITIS [None]
  - CEREBROVASCULAR ACCIDENT [None]
  - COAGULOPATHY [None]
  - DEPRESSION [None]
  - DIABETIC RETINOPATHY [None]
  - EYE HAEMORRHAGE [None]
  - HAEMATOCRIT ABNORMAL [None]
  - HAEMOGLOBIN ABNORMAL [None]
  - MOBILITY DECREASED [None]
  - NEUROPATHY PERIPHERAL [None]
  - SKIN CANCER [None]
  - SPEECH DISORDER [None]
  - VISUAL ACUITY REDUCED [None]
